FAERS Safety Report 26193995 (Version 1)
Quarter: 2025Q4

REPORT INFORMATION
  Report Type: Spontaneous
  Country: JP (occurrence: JP)
  Receive Date: 20251224
  Receipt Date: 20251224
  Transmission Date: 20260118
  Serious: Yes (Death)
  Sender: WAYLIS THERAPEUTICS LLC
  Company Number: JP-WT-2025-12675

PATIENT

DRUGS (1)
  1. LUNESTA [Suspect]
     Active Substance: ESZOPICLONE
     Route: 048

REACTIONS (2)
  - Death [Fatal]
  - Drug abuse [Fatal]
